FAERS Safety Report 5577802-1 (Version None)
Quarter: 2007Q4

REPORT INFORMATION
  Report Type: 
  Country: None (occurrence: None)
  Receive Date: 20071231
  Receipt Date: 20071221
  Transmission Date: 20080405
  Serious: Yes (Other)
  Sender: FDA-Public Use
  Company Number: PHBS2007JP20828

PATIENT
  Age: 77 Year
  Sex: Male

DRUGS (1)
  1. DICLOFENAC SODIUM [Suspect]
     Indication: BACK PAIN
     Dosage: UNK, UNK
     Route: 054
     Dates: start: 20050101

REACTIONS (3)
  - ANAL ULCER [None]
  - HAEMORRHAGE [None]
  - PAIN [None]
